FAERS Safety Report 14523822 (Version 4)
Quarter: 2018Q1

REPORT INFORMATION
  Report Type: Report from Study
  Country: RU (occurrence: RU)
  Receive Date: 20180213
  Receipt Date: 20180315
  Transmission Date: 20180509
  Serious: Yes (Other)
  Sender: FDA-Public Use
  Company Number: RU-ROCHE-2068029

PATIENT
  Age: 44 Year
  Sex: Female
  Weight: 88.5 kg

DRUGS (28)
  1. CETIRIZINE [Concomitant]
     Active Substance: CETIRIZINE HYDROCHLORIDE
     Route: 065
     Dates: start: 20160917, end: 20160926
  2. OCRELIZUMAB. [Suspect]
     Active Substance: OCRELIZUMAB
     Dosage: WEEK 48, CYCLE 7
     Route: 042
     Dates: start: 20151111, end: 20151111
  3. PARACETAMOL [Concomitant]
     Active Substance: ACETAMINOPHEN
     Route: 065
     Dates: start: 20140723, end: 20140723
  4. PARACETAMOL [Concomitant]
     Active Substance: ACETAMINOPHEN
     Route: 065
     Dates: start: 20160227, end: 20160228
  5. PARACETAMOL [Concomitant]
     Active Substance: ACETAMINOPHEN
     Dosage: 31/JAN/2013, 13/FEB/2013, 17/JUL/2013, 15/JAN/2014, 18/JUN/2014, 10/DEC/2014, 25/DEC/2014, 27/MAY/20
     Route: 065
  6. SYMBICORT [Concomitant]
     Active Substance: BUDESONIDE\FORMOTEROL FUMARATE DIHYDRATE
     Route: 065
     Dates: start: 20120920, end: 20131020
  7. SYMBICORT [Concomitant]
     Active Substance: BUDESONIDE\FORMOTEROL FUMARATE DIHYDRATE
     Route: 065
     Dates: start: 20131021
  8. OCRELIZUMAB. [Suspect]
     Active Substance: OCRELIZUMAB
     Dosage: WEEK 48, CYCLE 3?INTERRUPTED DUE TO TECHNICAL PROBLEM WITH INFUSION
     Route: 042
     Dates: start: 20140115, end: 20140115
  9. CETIRIZINE [Concomitant]
     Active Substance: CETIRIZINE HYDROCHLORIDE
     Route: 065
     Dates: start: 20140110, end: 20140112
  10. OCRELIZUMAB. [Suspect]
     Active Substance: OCRELIZUMAB
     Indication: RELAPSING-REMITTING MULTIPLE SCLEROSIS
     Dosage: WEEK 1, CYCLE 1 ADMINISTERED ON DAY 1 AND 15 OF FIRST 24 WEEK CYCLE FOLLOWED BY DAY 1 OF EACH SUBSEQ
     Route: 042
     Dates: start: 20130131, end: 20130131
  11. OCRELIZUMAB. [Suspect]
     Active Substance: OCRELIZUMAB
     Dosage: WEEK 2, CYCLE 5, DAY 15 OF FIRST 24 WEEK CYCLE FOLLOWED BY DAY 1 OF EACH SUBSEQUENT 24 WEEK CYCLE AS
     Route: 042
     Dates: start: 20141225, end: 20141225
  12. PARACETAMOL [Concomitant]
     Active Substance: ACETAMINOPHEN
     Route: 065
     Dates: start: 20151004, end: 20151005
  13. SYMBICORT [Concomitant]
     Active Substance: BUDESONIDE\FORMOTEROL FUMARATE DIHYDRATE
     Dosage: TURBUHALER
     Route: 065
     Dates: start: 20121023
  14. OCRELIZUMAB. [Suspect]
     Active Substance: OCRELIZUMAB
     Dosage: WEEK 2, DAY 15 OF FIRST 24 WEEK CYCLE FOLLOWED BY DAY 1 OF EACH SUBSEQUENT 24 WEEK CYCLE AS PER PROT
     Route: 042
     Dates: start: 20130213, end: 20130213
  15. OCRELIZUMAB. [Suspect]
     Active Substance: OCRELIZUMAB
     Dosage: WEEK 24, CYCLE 2
     Route: 042
     Dates: start: 20130717, end: 20130717
  16. OCRELIZUMAB. [Suspect]
     Active Substance: OCRELIZUMAB
     Dosage: WEEK 24, CYCLE 6
     Route: 042
     Dates: start: 20150527, end: 20150527
  17. PARACETAMOL [Concomitant]
     Active Substance: ACETAMINOPHEN
     Route: 065
     Dates: start: 20170222, end: 20170222
  18. OCRELIZUMAB. [Suspect]
     Active Substance: OCRELIZUMAB
     Dosage: WEEK 144, CYCLE 10
     Route: 042
     Dates: start: 20170912, end: 20170912
  19. PARACETAMOL [Concomitant]
     Active Substance: ACETAMINOPHEN
     Route: 065
     Dates: start: 20130705, end: 20130705
  20. METHYLPREDNISOLONE. [Concomitant]
     Active Substance: METHYLPREDNISOLONE
     Dosage: 31/JAN/2013, 13/FEB/2013, 17/JUL/2013, 15/JAN/2014, 18/JUN/2014, 10/DEC/2014, 25/DEC/2014, 27/MAY/20
     Route: 065
  21. OCRELIZUMAB. [Suspect]
     Active Substance: OCRELIZUMAB
     Indication: RELAPSING-REMITTING MULTIPLE SCLEROSIS
     Dosage: WEEK 0, CYCLE 5, DAY 1 OF FIRST 24 WEEK CYCLE FOLLOWED BY DAY 1 OF EACH SUBSEQUENT 24 WEEK CYCLE AS
     Route: 042
     Dates: start: 20141210, end: 20141210
  22. OCRELIZUMAB. [Suspect]
     Active Substance: OCRELIZUMAB
     Dosage: WEEK 120, CYCLE 10
     Route: 042
     Dates: start: 20170328, end: 20170328
  23. CETIRIZINE [Concomitant]
     Active Substance: CETIRIZINE HYDROCHLORIDE
     Dosage: 31/JAN/2013, 13/FEB/2013, 17/JUL/2013, 15/JAN/2014, 18/JUN/2014, 10/DEC/2014, 25/DEC/2014, 27/MAY/20
     Route: 065
  24. PLACEBO [Suspect]
     Active Substance: UNSPECIFIED INGREDIENT
     Indication: RELAPSING-REMITTING MULTIPLE SCLEROSIS
     Route: 058
     Dates: start: 20130131
  25. OCRELIZUMAB. [Suspect]
     Active Substance: OCRELIZUMAB
     Dosage: WEEK 72, CYCLE 8
     Route: 042
     Dates: start: 20160426, end: 20160426
  26. OCRELIZUMAB. [Suspect]
     Active Substance: OCRELIZUMAB
     Dosage: WEEK 96, CYCLE 9
     Route: 042
     Dates: start: 20161012, end: 20161012
  27. OCRELIZUMAB. [Suspect]
     Active Substance: OCRELIZUMAB
     Dosage: WEEK 72, CYCLE 4
     Route: 042
     Dates: start: 20140618, end: 20140618
  28. PLACEBO [Suspect]
     Active Substance: UNSPECIFIED INGREDIENT
     Dosage: MOST RECENT DOSE PRIOR TO SAE: 08/DEC/2014
     Route: 058
     Dates: start: 20141204

REACTIONS (1)
  - Malignant melanoma [Recovered/Resolved]

NARRATIVE: CASE EVENT DATE: 20180115
